FAERS Safety Report 18058562 (Version 1)
Quarter: 2020Q3

REPORT INFORMATION
  Report Type: Spontaneous
  Country: US (occurrence: US)
  Receive Date: 20200723
  Receipt Date: 20200723
  Transmission Date: 20201103
  Serious: No
  Sender: FDA-Public Use
  Company Number: US-MYLANLABS-2020M1064176

PATIENT
  Sex: Female
  Weight: 64 kg

DRUGS (1)
  1. ESTRADIOL TRANSDERMAL SYSTEM [Suspect]
     Active Substance: ESTRADIOL
     Indication: HORMONE REPLACEMENT THERAPY
     Dosage: 0.1 MILLIGRAM, BIWEEKLY
     Route: 062
     Dates: start: 20190713, end: 20200706

REACTIONS (3)
  - Abdominal distension [Not Recovered/Not Resolved]
  - Irregular sleep phase [Recovered/Resolved]
  - Weight increased [Not Recovered/Not Resolved]

NARRATIVE: CASE EVENT DATE: 20190713
